FAERS Safety Report 7609538 (Version 4)
Quarter: 2014Q1

REPORT INFORMATION
  Report Type: Spontaneous
  Country: US (occurrence: US)
  Receive Date: 20100928
  Receipt Date: 20140129
  Transmission Date: 20141002
  Serious: Yes (Other)
  Sender: FDA-Public Use
  Company Number: US-BAYER-201034611NA

PATIENT
  Age: 23 Year
  Sex: Female
  Weight: 95.24 kg

DRUGS (7)
  1. YAZ [Suspect]
     Indication: PRODUCT USED FOR UNKNOWN INDICATION
     Route: 048
     Dates: start: 200504, end: 200606
  2. ESTROSTEP [Concomitant]
  3. DIETARY SUPPLEMENT [Concomitant]
  4. IBUPROFEN [Concomitant]
  5. LEVAQUIN [Concomitant]
     Dosage: 750 MG, UNK
  6. PROMETHAZINE [Concomitant]
  7. ADVAIR [Concomitant]
     Dosage: 250/50

REACTIONS (3)
  - Gallbladder disorder [Unknown]
  - Cholelithiasis [Unknown]
  - Cholecystitis chronic [None]
